FAERS Safety Report 5069514-8 (Version None)
Quarter: 2006Q3

REPORT INFORMATION
  Report Type: 
  Country: None (occurrence: None)
  Receive Date: 20060803
  Receipt Date: 20060515
  Transmission Date: 20061208
  Serious: Yes (Hospitalization, Other)
  Sender: FDA-Public Use
  Company Number: US-BAYER-200613169BWH

PATIENT
  Age: 72 Year
  Sex: Female
  Weight: 52 kg

DRUGS (23)
  1. NEXAVAR [Suspect]
     Indication: RENAL CELL CARCINOMA STAGE UNSPECIFIED
     Dosage: UNIT DOSE: 200 MG
     Route: 048
     Dates: start: 20060515
  2. NEXAVAR [Suspect]
     Dosage: TOTAL DAILY DOSE: 800 MG  UNIT DOSE: 200 MG
     Route: 048
     Dates: start: 20060401, end: 20060501
  3. FLONASE [Concomitant]
  4. ZOCOR [Concomitant]
     Dosage: TOTAL DAILY DOSE: 40 MG  UNIT DOSE: 40 MG
     Route: 048
  5. PLAVIX [Concomitant]
     Dosage: TOTAL DAILY DOSE: 75 MG
     Route: 048
  6. LISINOPRIL [Concomitant]
     Dosage: TOTAL DAILY DOSE: 10 MG
     Route: 048
  7. SOTALOL HCL [Concomitant]
     Dosage: TOTAL DAILY DOSE: 8 MG
     Route: 048
  8. ASPIRIN [Concomitant]
     Dosage: TOTAL DAILY DOSE: 81 MG
     Route: 048
  9. OMEGA-3 [Concomitant]
     Route: 048
  10. ZESTORETIC [Concomitant]
     Route: 048
  11. TOPROL-XL [Concomitant]
     Dosage: TOTAL DAILY DOSE: 25 MG  UNIT DOSE: 25 MG
     Route: 048
  12. COQ10 [Concomitant]
     Route: 048
  13. BECONASE [Concomitant]
     Route: 055
  14. ESTRADIOL INJ [Concomitant]
     Dosage: UNIT DOSE: 1 MG
     Route: 048
  15. METROCREAM [Concomitant]
     Route: 061
  16. VITAMIN B COMPLEX CAP [Concomitant]
     Route: 048
  17. VITAMIN B-12 [Concomitant]
     Dosage: UNIT DOSE: 50 ?G
     Route: 048
  18. MULTIVITAMIN [Concomitant]
     Route: 048
  19. GARLIC [Concomitant]
     Dosage: TOTAL DAILY DOSE: 1000 MG  UNIT DOSE: 1000 MG
     Route: 048
  20. GINKO BILOBA [Concomitant]
     Route: 048
  21. FLAX SEED OIL [Concomitant]
     Route: 048
  22. GLUCOSAMINE CHONDROITIN [Concomitant]
     Dosage: UNIT DOSE: 400 MG
     Route: 048
  23. MILK THISTLE EXTRACT [Concomitant]
     Route: 048

REACTIONS (12)
  - ABDOMINAL PAIN UPPER [None]
  - ALOPECIA [None]
  - ANOREXIA [None]
  - ASTHENIA [None]
  - BLOOD PRESSURE INCREASED [None]
  - CHEST PAIN [None]
  - CORONARY ARTERY OCCLUSION [None]
  - DIARRHOEA [None]
  - FATIGUE [None]
  - PYREXIA [None]
  - RASH MACULAR [None]
  - SOMNOLENCE [None]
